FAERS Safety Report 5923680-8 (Version None)
Quarter: 2008Q4

REPORT INFORMATION
  Report Type: 
  Country: None (occurrence: None)
  Receive Date: 20081020
  Receipt Date: 20081010
  Transmission Date: 20090506
  Serious: Yes (Hospitalization)
  Sender: FDA-Public Use
  Company Number: A0731207A

PATIENT
  Age: 40 Year
  Sex: Female
  Weight: 97.7 kg

DRUGS (1)
  1. AVANDIA [Suspect]
     Route: 048
     Dates: start: 20040101, end: 20070101

REACTIONS (4)
  - CARDIAC FAILURE CONGESTIVE [None]
  - CEREBROVASCULAR ACCIDENT [None]
  - CONVULSION [None]
  - MYOCARDIAL INFARCTION [None]
